FAERS Safety Report 13582525 (Version 3)
Quarter: 2020Q3

REPORT INFORMATION
  Report Type: Report from Study
  Country: US (occurrence: US)
  Receive Date: 20170525
  Receipt Date: 20171019
  Transmission Date: 20201105
  Serious: Yes (Death, Hospitalization)
  Sender: FDA-Public Use
  Company Number: US-ASTRAZENECA-2016SE37641

PATIENT
  Age: 46 Year
  Sex: Male
  Weight: 58 kg

DRUGS (10)
  1. TREMELIMUMAB. [Suspect]
     Active Substance: TREMELIMUMAB
     Indication: SQUAMOUS CELL CARCINOMA OF HEAD AND NECK
     Dosage: 66.5MG ONCE/SINGLE ADMINISTRATION
     Route: 042
     Dates: start: 20160322, end: 20160322
  2. MARINOL [Concomitant]
     Active Substance: DRONABINOL
     Indication: DECREASED APPETITE
     Route: 065
     Dates: start: 201507, end: 20160429
  3. XANAX [Concomitant]
     Active Substance: ALPRAZOLAM
     Indication: ANXIETY
     Route: 065
     Dates: start: 201504
  4. GABAPENTIN. [Concomitant]
     Active Substance: GABAPENTIN
     Indication: NEUROPATHY PERIPHERAL
     Route: 065
     Dates: start: 201505
  5. MEDI4736 [Suspect]
     Active Substance: DURVALUMAB
     Indication: SQUAMOUS CELL CARCINOMA OF HEAD AND NECK
     Dosage: 1330.0MG ONCE/SINGLE ADMINISTRATION
     Route: 042
     Dates: start: 20160322, end: 20160322
  6. MEDI4736 [Suspect]
     Active Substance: DURVALUMAB
     Indication: SQUAMOUS CELL CARCINOMA OF HEAD AND NECK
     Dosage: 1152.0MG ONCE/SINGLE ADMINISTRATION
     Route: 042
     Dates: start: 20160419, end: 20160419
  7. HUMALOG PUMP [Concomitant]
     Indication: DIABETES MELLITUS
     Route: 065
  8. ZOFRAN [Concomitant]
     Active Substance: ONDANSETRON HYDROCHLORIDE
     Route: 065
     Dates: start: 201502
  9. COMPAZINE [Concomitant]
     Active Substance: PROCHLORPERAZINE MALEATE
     Indication: NAUSEA
     Route: 065
     Dates: start: 201502
  10. TREMELIMUMAB. [Suspect]
     Active Substance: TREMELIMUMAB
     Indication: SQUAMOUS CELL CARCINOMA OF HEAD AND NECK
     Dosage: 57.6MG ONCE/SINGLE ADMINISTRATION
     Route: 042
     Dates: start: 20160419, end: 20160419

REACTIONS (4)
  - Abdominal pain [Recovered/Resolved]
  - Duodenitis [Not Recovered/Not Resolved]
  - Diarrhoea [Recovered/Resolved]
  - Coeliac disease [Not Recovered/Not Resolved]

NARRATIVE: CASE EVENT DATE: 20160330
